FAERS Safety Report 6369788-7 (Version None)
Quarter: 2009Q3

REPORT INFORMATION
  Report Type: 
  Country: None (occurrence: None)
  Receive Date: 20090922
  Receipt Date: 20090922
  Transmission Date: 20100115
  Serious: No
  Sender: FDA-Public Use
  Company Number: None

PATIENT
  Age: 48 Year
  Sex: Male
  Weight: 129.2752 kg

DRUGS (1)
  1. NIASPAN, 500MG ER, ABBOTT [Suspect]
     Indication: DYSLIPIDAEMIA
     Dosage: 500MG ONCE DAILY ORAL
     Route: 048
     Dates: start: 20090828

REACTIONS (4)
  - DIZZINESS [None]
  - FLUSHING [None]
  - HEART RATE INCREASED [None]
  - INSOMNIA [None]
